FAERS Safety Report 5226562-2 (Version None)
Quarter: 2007Q1

REPORT INFORMATION
  Report Type: 
  Country: None (occurrence: None)
  Receive Date: 20070201
  Receipt Date: 20070122
  Transmission Date: 20070707
  Serious: Yes (Hospitalization, Other)
  Sender: FDA-Public Use
  Company Number: US-SANOFI-SYNTHELABO-A03200606177

PATIENT
  Sex: Male
  Weight: 66 kg

DRUGS (19)
  1. CYCLOSPORINE [Concomitant]
     Dosage: UNK
     Route: 048
     Dates: start: 19930101, end: 20050101
  2. AZATHIOPRINE [Concomitant]
     Dosage: UNK
     Route: 048
     Dates: start: 19930101, end: 20050101
  3. QUININE [Suspect]
     Indication: DRUG USE FOR UNKNOWN INDICATION
     Dosage: UNK
     Route: 048
     Dates: end: 20060501
  4. ALTACE [Suspect]
     Indication: DRUG USE FOR UNKNOWN INDICATION
     Route: 048
     Dates: end: 20060501
  5. EPOGEN [Suspect]
     Indication: DIALYSIS
     Route: 042
     Dates: start: 20041105, end: 20060501
  6. EPOGEN [Suspect]
     Route: 058
     Dates: start: 20061222
  7. TUMS [Concomitant]
     Dosage: UNK
     Route: 048
  8. SINEMET [Concomitant]
     Dosage: UNK
     Route: 048
  9. SEVELAMER [Concomitant]
     Dosage: UNK
     Route: 048
  10. PREDNISONE [Concomitant]
     Dosage: UNK
     Route: 048
  11. ATORVASTATIN CALCIUM [Concomitant]
     Dosage: UNK
     Route: 048
  12. INSULIN [Concomitant]
     Dosage: UNK
     Route: 058
  13. VITAMINS [Concomitant]
     Dosage: UNK
     Route: 048
  14. CARVEDILOL [Concomitant]
     Dosage: UNK
     Route: 048
  15. AMBIEN [Concomitant]
     Dosage: UNK
     Route: 048
     Dates: start: 20041101
  16. PLAVIX [Suspect]
     Indication: DRUG USE FOR UNKNOWN INDICATION
     Dosage: UNK
     Route: 048
     Dates: end: 20060501
  17. HEPARIN [Suspect]
     Dosage: UNK
     Route: 065
     Dates: end: 20060501
  18. ASPIRIN [Suspect]
     Dosage: UNK
     Route: 048
     Dates: start: 20041101, end: 20060501
  19. LORAZEPAM [Concomitant]
     Dosage: UNK
     Route: 048

REACTIONS (4)
  - APLASTIC ANAEMIA [None]
  - CARDIO-RESPIRATORY ARREST [None]
  - IMPAIRED HEALING [None]
  - THERAPEUTIC RESPONSE DECREASED [None]
